FAERS Safety Report 5778740-1 (Version None)
Quarter: 2008Q2

REPORT INFORMATION
  Report Type: 
  Country: None (occurrence: None)
  Receive Date: 20080617
  Receipt Date: 20080610
  Transmission Date: 20081010
  Serious: Yes (Other)
  Sender: FDA-Public Use
  Company Number: 028865

PATIENT
  Age: 42 Year
  Sex: Male

DRUGS (2)
  1. TREXALL [Suspect]
     Dates: end: 20071101
  2. ENBREL [Suspect]
     Indication: RHEUMATOID ARTHRITIS
     Dosage: 50 MG, 1/WEEK, SUBCUTANEOUS
     Route: 058
     Dates: start: 20070915

REACTIONS (4)
  - DISORIENTATION [None]
  - FLUSHING [None]
  - HEPATIC ENZYME INCREASED [None]
  - HYPERTENSION [None]
